FAERS Safety Report 5854310-1 (Version None)
Quarter: 2008Q3

REPORT INFORMATION
  Report Type: 
  Country: None (occurrence: None)
  Receive Date: 20080822
  Receipt Date: 20080812
  Transmission Date: 20090109
  Serious: Yes (Life-Threatening, Hospitalization, Other)
  Sender: FDA-Public Use
  Company Number: US-ROCHE-579434

PATIENT
  Sex: Female
  Weight: 66 kg

DRUGS (6)
  1. XELODA [Suspect]
     Dosage: 14 DAYS ON AND 7 DAYS OFF
     Route: 048
     Dates: start: 20080221, end: 20080728
  2. PRILOSEC [Concomitant]
  3. CALCIUM/VITAMIN D [Concomitant]
     Indication: BONE DISORDER
  4. HYDROCHLOROTHIAZIDE [Concomitant]
     Indication: FLUID RETENTION
     Dosage: FREQUENCY: QD, PRN
     Route: 048
     Dates: start: 20080403
  5. OXYCODONE HCL [Concomitant]
     Indication: PAIN
     Dosage: FREQENCY: EVERY FOUR HOUR (Q4H), PRN
     Route: 048
     Dates: start: 20080221
  6. XANAX [Concomitant]
     Indication: INSOMNIA
     Dosage: DOSE: 0.25, FREQUENCY: AT NIGHT (QHS), PRN
     Route: 048

REACTIONS (3)
  - CARDIAC TAMPONADE [None]
  - PERICARDIAL EFFUSION [None]
  - PLEURAL EFFUSION [None]
